FAERS Safety Report 21541327 (Version 1)
Quarter: 2022Q4

REPORT INFORMATION
  Report Type: Spontaneous
  Country: US (occurrence: US)
  Receive Date: 20221102
  Receipt Date: 20221102
  Transmission Date: 20230112
  Serious: No
  Sender: FDA-Public Use
  Company Number: US-BIOGEN-2022BI01153900

PATIENT
  Age: 63 Year
  Sex: Female

DRUGS (1)
  1. TECFIDERA [Suspect]
     Active Substance: DIMETHYL FUMARATE
     Indication: Multiple sclerosis
     Route: 050

REACTIONS (5)
  - Fatigue [Unknown]
  - Headache [Unknown]
  - Hepatomegaly [Unknown]
  - Liver function test increased [Unknown]
  - Flushing [Unknown]

NARRATIVE: CASE EVENT DATE: 20221028
